FAERS Safety Report 21262001 (Version 1)
Quarter: 2022Q3

REPORT INFORMATION
  Report Type: Spontaneous
  Country: CN (occurrence: None)
  Receive Date: 20220827
  Receipt Date: 20220827
  Transmission Date: 20221026
  Serious: Yes (Death)
  Sender: FDA-Public Use
  Company Number: 2022A294703

PATIENT
  Age: 42 Year
  Sex: Female

DRUGS (1)
  1. OLAPARIB [Suspect]
     Active Substance: OLAPARIB
     Indication: Ovarian cancer metastatic
     Route: 048
     Dates: start: 201903

REACTIONS (10)
  - Malignant neoplasm progression [Fatal]
  - Drug resistance [Fatal]
  - Myelosuppression [Fatal]
  - Metastases to lung [Fatal]
  - Ovarian cancer [Fatal]
  - Metastases to lymph nodes [Fatal]
  - Metastases to liver [Fatal]
  - Vomiting [Unknown]
  - Fatigue [Unknown]
  - Oedema [Unknown]
